FAERS Safety Report 23816542 (Version 1)
Quarter: 2024Q2

REPORT INFORMATION
  Report Type: Spontaneous
  Country: GB (occurrence: GB)
  Receive Date: 20240503
  Receipt Date: 20240503
  Transmission Date: 20240715
  Serious: Yes (Other)
  Sender: FDA-Public Use
  Company Number: GB-BIOGEN-2023BI01219072

PATIENT
  Sex: Female

DRUGS (2)
  1. VUMERITY [Suspect]
     Active Substance: DIROXIMEL FUMARATE
     Indication: Multiple sclerosis
     Dosage: ONE CAPSULE TWICE DAILY FOR 7 DAYS FOLLOWED BY TWO CAPSULES TWICE DAILY
     Route: 050
  2. VUMERITY [Suspect]
     Active Substance: DIROXIMEL FUMARATE
     Dosage: ONE CAPSULE TWICE DAILY FOR 7 DAYS FOLLOWED BY TWO CAPSULES TWICE DAILY
     Route: 050

REACTIONS (1)
  - Skin cancer [Recovered/Resolved]
